FAERS Safety Report 8831631 (Version 1)
Quarter: 2012Q4

REPORT INFORMATION
  Report Type: 
  Country: US (occurrence: US)
  Receive Date: 20121009
  Receipt Date: 20121009
  Transmission Date: 20130627
  Serious: Yes (Other)
  Sender: FDA-Public Use
  Company Number: US-ELI_LILLY_AND_COMPANY-US201210000322

PATIENT
  Age: 64 Year

DRUGS (3)
  1. HUMULIN REGULAR [Suspect]
     Indication: DIABETES MELLITUS
     Dosage: 11 u, tid
     Dates: start: 2012
  2. HUMULIN NPH [Suspect]
     Indication: DIABETES MELLITUS
     Dosage: 48 u, bid
     Dates: start: 2002
  3. NOVOLIN N [Concomitant]

REACTIONS (4)
  - Cerebrovascular accident [Unknown]
  - Hypertension [Unknown]
  - Mobility decreased [Not Recovered/Not Resolved]
  - Drug dispensing error [Recovered/Resolved]
